FAERS Safety Report 10363172 (Version 2)
Quarter: 2014Q3

REPORT INFORMATION
  Report Type: Spontaneous
  Country: NO (occurrence: NO)
  Receive Date: 20140805
  Receipt Date: 20140901
  Transmission Date: 20150326
  Serious: Yes (Disabling)
  Sender: FDA-Public Use
  Company Number: NO-JNJFOC-20140717962

PATIENT
  Age: 23 Year
  Sex: Male

DRUGS (26)
  1. PURINETHOL [Suspect]
     Active Substance: MERCAPTOPURINE
     Indication: T-CELL TYPE ACUTE LEUKAEMIA
     Dosage: 1-45 DAYS
     Route: 065
     Dates: start: 20080213
  2. CHEMOTHERAPEUTICS NOS [Suspect]
     Active Substance: UNSPECIFIED INGREDIENT
     Indication: T-CELL TYPE ACUTE LEUKAEMIA
     Route: 065
     Dates: start: 2007, end: 2009
  3. PREDNISOLONE. [Suspect]
     Active Substance: PREDNISOLONE
     Indication: PRODUCT USED FOR UNKNOWN INDICATION
     Route: 065
     Dates: start: 20070420, end: 20070424
  4. VINCRISTINE [Suspect]
     Active Substance: VINCRISTINE
     Indication: T-CELL TYPE ACUTE LEUKAEMIA
     Route: 042
     Dates: start: 20070425, end: 2009
  5. L-ASPARAGINASE [Suspect]
     Active Substance: ASPARAGINASE
     Indication: T-CELL TYPE ACUTE LEUKAEMIA
     Route: 030
     Dates: start: 20070531, end: 20071031
  6. METHOTREXATE [Suspect]
     Active Substance: METHOTREXATE
     Indication: PANCYTOPENIA
     Route: 065
  7. PURINETHOL [Suspect]
     Active Substance: MERCAPTOPURINE
     Indication: T-CELL TYPE ACUTE LEUKAEMIA
     Route: 065
     Dates: start: 20080924, end: 2009
  8. METHOTREXATE [Suspect]
     Active Substance: METHOTREXATE
     Indication: T-CELL TYPE ACUTE LEUKAEMIA
     Route: 065
  9. CYTARABINE. [Suspect]
     Active Substance: CYTARABINE
     Indication: T-CELL TYPE ACUTE LEUKAEMIA
     Route: 042
     Dates: start: 20070615, end: 20071214
  10. LANVIS [Suspect]
     Active Substance: THIOGUANINE ANHYDROUS
     Indication: T-CELL TYPE ACUTE LEUKAEMIA
     Route: 048
     Dates: start: 20070613, end: 20080723
  11. METHOTREXATE [Suspect]
     Active Substance: METHOTREXATE
     Indication: PANCYTOPENIA
     Route: 065
     Dates: start: 20070425, end: 2009
  12. METHOTREXATE [Suspect]
     Active Substance: METHOTREXATE
     Indication: T-CELL TYPE ACUTE LEUKAEMIA
     Route: 065
     Dates: start: 20070425, end: 2009
  13. PREDNISOLONE. [Suspect]
     Active Substance: PREDNISOLONE
     Indication: T-CELL TYPE ACUTE LEUKAEMIA
     Route: 065
     Dates: start: 20070420, end: 20070424
  14. PURINETHOL [Suspect]
     Active Substance: MERCAPTOPURINE
     Indication: PANCYTOPENIA
     Dosage: 1-45 DAYS
     Route: 065
     Dates: start: 20080213
  15. PREDNISOLONE. [Suspect]
     Active Substance: PREDNISOLONE
     Indication: PRODUCT USED FOR UNKNOWN INDICATION
     Route: 065
     Dates: start: 20070425
  16. CYTOSAR [Suspect]
     Active Substance: CYTARABINE
     Indication: T-CELL TYPE ACUTE LEUKAEMIA
     Route: 042
     Dates: start: 20070713, end: 20080903
  17. PURINETHOL [Suspect]
     Active Substance: MERCAPTOPURINE
     Indication: PANCYTOPENIA
     Route: 065
     Dates: start: 20080924, end: 2009
  18. DEXAMETHASONE. [Suspect]
     Active Substance: DEXAMETHASONE
     Indication: PRODUCT USED FOR UNKNOWN INDICATION
     Route: 048
     Dates: start: 20071031, end: 2009
  19. PREDNISOLONE. [Suspect]
     Active Substance: PREDNISOLONE
     Indication: T-CELL TYPE ACUTE LEUKAEMIA
     Route: 065
     Dates: start: 20070425
  20. HYDROXYUREA. [Suspect]
     Active Substance: HYDROXYUREA
     Indication: T-CELL TYPE ACUTE LEUKAEMIA
     Route: 065
     Dates: start: 20080611, end: 20080614
  21. CARMUSTINE [Suspect]
     Active Substance: CARMUSTINE
     Indication: T-CELL TYPE ACUTE LEUKAEMIA
     Route: 065
     Dates: start: 20080630, end: 20080825
  22. VINCRISTINE [Suspect]
     Active Substance: VINCRISTINE
     Indication: T-CELL TYPE ACUTE LEUKAEMIA
     Route: 042
     Dates: start: 20080713, end: 20080713
  23. CYCLOPHOSPHAMIDE. [Suspect]
     Active Substance: CYCLOPHOSPHAMIDE
     Indication: T-CELL TYPE ACUTE LEUKAEMIA
     Route: 042
     Dates: start: 20070613, end: 20070711
  24. DOXORUBICIN HYDROCHLORIDE. [Suspect]
     Active Substance: DOXORUBICIN HYDROCHLORIDE
     Indication: T-CELL TYPE ACUTE LEUKAEMIA
     Route: 042
     Dates: start: 20070425, end: 20071114
  25. CORTICOSTEROIDS [Suspect]
     Active Substance: CORTICOSTEROID NOS
     Indication: T-CELL TYPE ACUTE LEUKAEMIA
     Route: 065
     Dates: start: 2007, end: 2009
  26. DAUNORUBICIN [Suspect]
     Active Substance: DAUNORUBICIN
     Indication: T-CELL TYPE ACUTE LEUKAEMIA
     Route: 042
     Dates: start: 20080616, end: 20080811

REACTIONS (3)
  - Hip deformity [Unknown]
  - Osteonecrosis [Not Recovered/Not Resolved]
  - Deafness [Not Recovered/Not Resolved]

NARRATIVE: CASE EVENT DATE: 20120906
